FAERS Safety Report 6892425-X (Version None)
Quarter: 2010Q3

REPORT INFORMATION
  Report Type: 
  Country: None (occurrence: None)
  Receive Date: 20100731
  Receipt Date: 20080502
  Transmission Date: 20110219
  Serious: No
  Sender: FDA-Public Use
  Company Number: US-PFIZER INC-2007108270

PATIENT
  Sex: Female
  Weight: 106.8 kg

DRUGS (5)
  1. NEURONTIN [Suspect]
     Indication: PERIPHERAL NERVE INJURY
     Dates: start: 20070901, end: 20071201
  2. NEURONTIN [Suspect]
     Dates: start: 20071201
  3. LORTAB [Concomitant]
     Indication: PAIN
  4. ACCUPRIL [Concomitant]
     Indication: BLOOD PRESSURE ABNORMAL
  5. HYDROCHLOROTHIAZIDE [Concomitant]

REACTIONS (5)
  - DIZZINESS [None]
  - DRUG INEFFECTIVE [None]
  - FEELING DRUNK [None]
  - MALAISE [None]
  - WRONG TECHNIQUE IN DRUG USAGE PROCESS [None]
